FAERS Safety Report 19078204 (Version 1)
Quarter: 2021Q1

REPORT INFORMATION
  Report Type: Report from Study
  Country: US (occurrence: US)
  Receive Date: 20210331
  Receipt Date: 20210331
  Transmission Date: 20210420
  Serious: Yes (Other)
  Sender: FDA-Public Use
  Company Number: US-PFIZER INC-2021218091

PATIENT
  Age: 77 Year
  Sex: Male

DRUGS (5)
  1. RAMIPRIL. [Suspect]
     Active Substance: RAMIPRIL
     Dosage: UNK
  2. IMBRUVICA [Suspect]
     Active Substance: IBRUTINIB
     Indication: CHRONIC LYMPHOCYTIC LEUKAEMIA
     Dosage: 420 DF, 1X/DAY (420 DOSAGE FORMS,1 IN 1 DAY)
     Route: 048
     Dates: start: 20181208
  3. ATORVASTATIN [Concomitant]
     Active Substance: ATORVASTATIN
     Dosage: UNK
  4. ZYRTEC [Concomitant]
     Active Substance: CETIRIZINE HYDROCHLORIDE
     Dosage: UNK
  5. FINASTERIDE. [Concomitant]
     Active Substance: FINASTERIDE
     Dosage: UNK

REACTIONS (4)
  - Lip swelling [Unknown]
  - Swollen tongue [Unknown]
  - Drug hypersensitivity [Unknown]
  - Blood pressure abnormal [Unknown]
